FAERS Safety Report 20959056 (Version 2)
Quarter: 2022Q3

REPORT INFORMATION
  Report Type: Spontaneous
  Country: IT (occurrence: IT)
  Receive Date: 20220614
  Receipt Date: 20220714
  Transmission Date: 20221026
  Serious: Yes (Death, Life-Threatening, Other)
  Sender: FDA-Public Use
  Company Number: IT-CELLTRION HEALTHCARE HUNGARY KFT-2022IT008005

PATIENT

DRUGS (47)
  1. ETOPOSIDE [Suspect]
     Active Substance: ETOPOSIDE
     Indication: High-grade B-cell lymphoma
     Dosage: 100 MG/M2 EVERY 12 HOURS (BEAM REGIMEN DAYS 2-5)
     Route: 065
  2. ETOPOSIDE [Suspect]
     Active Substance: ETOPOSIDE
     Indication: Burkitt^s lymphoma
     Dosage: 250 MG/M2 EVERY 12 HOURS (INDUCTION PHASE DAY 15)
     Route: 065
  3. METHOTREXATE [Suspect]
     Active Substance: METHOTREXATE
     Indication: Burkitt^s lymphoma
     Dosage: 12 MG + CYTARABINE + STEROIDS (INDUCTION PHASE DAY 5, 19, 33)
     Route: 065
  4. HYDROCORTISONE [Suspect]
     Active Substance: HYDROCORTISONE
     Indication: Burkitt^s lymphoma
     Dosage: UNK
     Route: 065
  5. HYDROCORTISONE [Suspect]
     Active Substance: HYDROCORTISONE
     Indication: High-grade B-cell lymphoma
  6. DOXORUBICIN [Suspect]
     Active Substance: DOXORUBICIN
     Indication: Burkitt^s lymphoma
     Dosage: 50 MG/M2 I.V. BOLUS (INDUCTION PHASE DAY 29)
     Route: 040
  7. CYTARABINE [Suspect]
     Active Substance: CYTARABINE
     Indication: High-grade B-cell lymphoma
     Dosage: 2 G/M2 IN 3HR INFUSION, BID (HIV POSITIVE CONSOLIDATION PHASE DAY 50-5
     Route: 065
  8. CYTARABINE [Suspect]
     Active Substance: CYTARABINE
     Indication: Burkitt^s lymphoma
     Dosage: 200 MILLIGRAM/SQ. METER (200 MG/M2 EVERY 12 HOURS (BEAM REGIMEN DAYS 2-5))
     Route: 065
  9. CYTARABINE [Suspect]
     Active Substance: CYTARABINE
     Dosage: 2 G/M2 EVERY 12 HOURS FOR FOUR DAYS, INTENSIFICATION PHASE 11 + 12 WEEK (DAYS -5 TO -2)
     Route: 065
  10. CYTARABINE [Suspect]
     Active Substance: CYTARABINE
     Dosage: 50 MILLIGRAM, BIWEEKLY (CONVENTIONAL TRIPLE-DRUG INTRATHECAL CHEMOTHERAPY
     Route: 037
  11. CYTARABINE [Suspect]
     Active Substance: CYTARABINE
     Dosage: 50 MILLIGRAM (50 MG + METHOTREXATE + STEROIDS (INDUCTION PHASE DAY 5, 19, 33))
     Route: 065
  12. CYTARABINE [Suspect]
     Active Substance: CYTARABINE
     Dosage: 750 MILLIGRAM/SQ. METER (750 MG/M2 FOLLOWED 3 HOURS LATER BY 1 G/M2 BY 24-HOUR INFUSION)
     Route: 065
  13. RITUXIMAB [Suspect]
     Active Substance: RITUXIMAB
     Indication: Burkitt^s lymphoma
     Dosage: 375 MG/M2, INTENSIFICATION PHASE 7 + 8 WEEK ON DAYS 3 AND 10
     Route: 065
  14. RITUXIMAB [Suspect]
     Active Substance: RITUXIMAB
     Dosage: 375 MILLIGRAM/SQ. METER,375 MG/M2, HIV-NEGATIVE CONSOLIDATION PHASE (DAY 56)
     Route: 065
  15. RITUXIMAB [Suspect]
     Active Substance: RITUXIMAB
     Dosage: 375 MILLIGRAM/SQ. METER,375 MG/M2, HIV-POSITIVE CONSOLIDATION PHASE (DAY 52, 60)
     Route: 065
  16. RITUXIMAB [Suspect]
     Active Substance: RITUXIMAB
     Dosage: 375 MILLIGRAM/SQ. METER, 375 MG/M2, INDUCTION PHASE (DAY 2, 14, 29, 36)
     Route: 065
  17. CYCLOPHOSPHAMIDE [Suspect]
     Active Substance: CYCLOPHOSPHAMIDE
     Indication: Burkitt^s lymphoma
     Dosage: 500 MG/M2 OVER 1 HOUR INFUSION, INDUCTION PHASE (DAY 0, 1)
     Route: 065
  18. CYCLOPHOSPHAMIDE [Suspect]
     Active Substance: CYCLOPHOSPHAMIDE
     Indication: High-grade B-cell lymphoma
     Dosage: 4 G/M2 (INTENSIFICATION PHASE: 7 + 8 WEEK)
     Route: 065
  19. LEUCOVORIN CALCIUM [Suspect]
     Active Substance: LEUCOVORIN CALCIUM
     Indication: High-grade B-cell lymphoma
     Dosage: UNK
     Route: 065
  20. LEUCOVORIN CALCIUM [Suspect]
     Active Substance: LEUCOVORIN CALCIUM
     Indication: Burkitt^s lymphoma
     Dosage: 15 MG/M2 I.V. STARTING 24 HRS AFTER COMPLETING METHOTREXATE INFUSION AND CONTINUED EVERY 6 HOURS
     Route: 042
  21. METHOTREXATE [Suspect]
     Active Substance: METHOTREXATE
     Indication: High-grade B-cell lymphoma
     Dosage: 12 MG, BIWEEKLY, CONVENTIONAL TRIPLE-DRUG INTRATHECAL CHEMOTHERAPY
     Route: 037
  22. METHOTREXATE [Suspect]
     Active Substance: METHOTREXATE
     Dosage: 3 G/M2 IV. OVER 6 HOURS WITH LEUCOVORIN RESCUE THERAPY (INDUCTION PHASE DAY 7, 21)
     Route: 042
  23. METHYLPREDNISOLONE [Suspect]
     Active Substance: METHYLPREDNISOLONE
     Indication: High-grade B-cell lymphoma
     Dosage: UNK
     Route: 065
  24. METHYLPREDNISOLONE [Suspect]
     Active Substance: METHYLPREDNISOLONE
     Indication: Burkitt^s lymphoma
     Dosage: 0.5-1 MG/KG/D I.V. (INDUCTION PHASE DAY -2, -1, 0, 1)
     Route: 042
  25. CARMUSTINE [Suspect]
     Active Substance: CARMUSTINE
     Indication: High-grade B-cell lymphoma
     Dosage: UNK
     Route: 065
  26. CARMUSTINE [Suspect]
     Active Substance: CARMUSTINE
     Indication: Burkitt^s lymphoma
     Dosage: 300 MG/M2, BEAM REGIMEN DAY 1
     Route: 065
  27. CARBOPLATIN [Suspect]
     Active Substance: CARBOPLATIN
     Indication: Disease progression
     Dosage: INTENSIFICATION PHASE: ONE OR TWO COURSES OF R-IVAC OR R-ICE ON 1 + 4 WEEK
     Route: 065
  28. CYTARABINE [Suspect]
     Active Substance: CYTARABINE
     Indication: Disease progression
     Dosage: 1 OR 2 COURSES OF R-IVAC OR R-ICE (DEBULKING CHEMOTHERAPY), INTENSIFICATION PHASE 1 + 4 WEEK
     Route: 065
  29. VINCRISTINE [Suspect]
     Active Substance: VINCRISTINE
     Indication: High-grade B-cell lymphoma
     Dosage: UNK
     Route: 065
  30. VINCRISTINE [Suspect]
     Active Substance: VINCRISTINE
     Indication: Burkitt^s lymphoma
     Dosage: 2 MG TOTAL DOSE I.V. BOLUS (INDUCTION PHASE DAY 0, 36)
     Route: 040
  31. MELPHALAN [Suspect]
     Active Substance: MELPHALAN
     Indication: Burkitt^s lymphoma
     Dosage: 140 MG/M2, BEAM REGIMEN DAY 6
     Route: 065
  32. MELPHALAN [Suspect]
     Active Substance: MELPHALAN
     Indication: High-grade B-cell lymphoma
     Dosage: UNK
     Route: 065
  33. CISPLATIN [Suspect]
     Active Substance: CISPLATIN
     Indication: Burkitt^s lymphoma
     Dosage: 20 MG/M2/D BY 24-HOUR INFUSION (HIV NEGATIVE CONSOLIDATION PHASE DAY 50-53)
     Route: 065
  34. CISPLATIN [Suspect]
     Active Substance: CISPLATIN
     Indication: High-grade B-cell lymphoma
  35. FOTEMUSTINE [Suspect]
     Active Substance: FOTEMUSTINE
     Indication: Burkitt^s lymphoma
     Dosage: 150 MG/SQ. METER,CARMUSTINE WAS REPLACED BY FOTEMUSTINE 150 MG/M2/D DAYS 1
     Route: 065
  36. FOTEMUSTINE [Suspect]
     Active Substance: FOTEMUSTINE
     Indication: High-grade B-cell lymphoma
     Dosage: UNK
     Route: 065
  37. HYDROCORTISONE [Suspect]
     Active Substance: HYDROCORTISONE
     Indication: Burkitt^s lymphoma
     Dosage: 40MG, BIWEEKLY (CONVENTIONAL CHEMOTHERAPY (METHOTREXATE 12 MG + CYTARABINE 50MG+HYDROCORT)
     Route: 037
  38. HYDROCORTISONE [Suspect]
     Active Substance: HYDROCORTISONE
     Indication: High-grade B-cell lymphoma
  39. IFOSFAMIDE [Suspect]
     Active Substance: IFOSFAMIDE
     Indication: Disease progression
     Dosage: 1 OR 2 COURSES OF R-IVAC/R-ICE (DEBULKING CHEMOTHERAPY), INTENSIFICATION PHASE 1+4 WEEK
     Route: 065
  40. IFOSFAMIDE [Suspect]
     Active Substance: IFOSFAMIDE
     Indication: High-grade B-cell lymphoma
  41. IFOSFAMIDE [Suspect]
     Active Substance: IFOSFAMIDE
     Indication: Burkitt^s lymphoma
  42. ETOPOSIDE [Suspect]
     Active Substance: ETOPOSIDE
  43. IFOSFAMIDE [Suspect]
     Active Substance: IFOSFAMIDE
  44. RITUXIMAB [Suspect]
     Active Substance: RITUXIMAB
  45. ETOPOSIDE PHOSPHATE [Suspect]
     Active Substance: ETOPOSIDE PHOSPHATE
  46. IFOSFAMIDE [Suspect]
     Active Substance: IFOSFAMIDE
  47. RITUXIMAB [Suspect]
     Active Substance: RITUXIMAB

REACTIONS (24)
  - Lymphoma [Fatal]
  - Acute myeloid leukaemia [Fatal]
  - Acute respiratory distress syndrome [Fatal]
  - Febrile neutropenia [Fatal]
  - Bacterial infection [Fatal]
  - COVID-19 [Fatal]
  - Sepsis [Fatal]
  - Hepatotoxicity [Unknown]
  - Tumour lysis syndrome [Unknown]
  - Neutropenia [Unknown]
  - Mucosal inflammation [Unknown]
  - Cardiotoxicity [Unknown]
  - Anaemia [Unknown]
  - Disease progression [Unknown]
  - Diarrhoea [Unknown]
  - Disease recurrence [Unknown]
  - Headache [Unknown]
  - Cerebrovascular accident [Unknown]
  - Off label use [Unknown]
  - Vomiting [Unknown]
  - Thrombocytopenia [Unknown]
  - Therapy partial responder [Unknown]
  - Intestinal obstruction [Unknown]
  - Cytomegalovirus infection [Unknown]
